FAERS Safety Report 4604820-X (Version None)
Quarter: 2005Q2

REPORT INFORMATION
  Report Type: 
  Country: None (occurrence: None)
  Receive Date: 20050224
  Receipt Date: 20040128
  Transmission Date: 20051028
  Serious: No
  Sender: FDA-Public Use
  Company Number: 04P-163-0249498-00

PATIENT
  Sex: Female

DRUGS (1)
  1. DILAUDID [Suspect]
     Dosage: 0.4 MILLIGRAM/MILLILITERS, PCA, INTRAVENOUS
     Route: 042
     Dates: start: 20040101

REACTIONS (4)
  - MEDICATION ERROR [None]
  - OVERDOSE [None]
  - RESPIRATORY ARREST [None]
  - RESPIRATORY RATE DECREASED [None]
